FAERS Safety Report 26176596 (Version 1)
Quarter: 2025Q4

REPORT INFORMATION
  Report Type: Spontaneous
  Country: US (occurrence: US)
  Receive Date: 20251218
  Receipt Date: 20251218
  Transmission Date: 20260118
  Serious: No
  Sender: NOVO NORDISK
  Company Number: US-NOVOPROD-1461652

PATIENT
  Sex: Male

DRUGS (1)
  1. LEVEMIR [Suspect]
     Active Substance: INSULIN DETEMIR
     Indication: Diabetes mellitus
     Dosage: 8 UNITS AM AND 14 UNITS PM
     Route: 058

REACTIONS (2)
  - Walking aid user [Not Recovered/Not Resolved]
  - Inappropriate schedule of product administration [Unknown]
